FAERS Safety Report 24265762 (Version 1)
Quarter: 2024Q3

REPORT INFORMATION
  Report Type: Spontaneous
  Country: US (occurrence: US)
  Receive Date: 20240830
  Receipt Date: 20240830
  Transmission Date: 20241017
  Serious: Yes (Other)
  Sender: ABBVIE
  Company Number: US-ABBVIE-5896224

PATIENT
  Age: 20 Year
  Sex: Male

DRUGS (5)
  1. ADALIMUMAB [Suspect]
     Active Substance: ADALIMUMAB
     Indication: Psoriasis
     Route: 058
  2. VILOBELIMAB [Concomitant]
     Active Substance: VILOBELIMAB
     Indication: Psoriasis
     Dosage: DAY 1
     Route: 065
  3. VILOBELIMAB [Concomitant]
     Active Substance: VILOBELIMAB
     Indication: Psoriasis
     Dosage: DAY 4
     Route: 065
  4. VILOBELIMAB [Concomitant]
     Active Substance: VILOBELIMAB
     Indication: Psoriasis
     Dosage: DAY 7
     Route: 065
  5. VILOBELIMAB [Concomitant]
     Active Substance: VILOBELIMAB
     Indication: Psoriasis
     Route: 065

REACTIONS (1)
  - Pyoderma gangrenosum [Unknown]
